FAERS Safety Report 18224389 (Version 2)
Quarter: 2020Q3

REPORT INFORMATION
  Report Type: Spontaneous
  Country: CH (occurrence: CH)
  Receive Date: 20200902
  Receipt Date: 20200915
  Transmission Date: 20201103
  Serious: Yes (Hospitalization)
  Sender: FDA-Public Use
  Company Number: CH-PURDUE-USA-2020-0164167

PATIENT
  Age: 88 Year
  Sex: Female

DRUGS (10)
  1. DALMADORM [Concomitant]
     Active Substance: FLURAZEPAM HYDROCHLORIDE
  2. LITHIOFOR [Concomitant]
     Active Substance: LITHIUM SULFATE
  3. ACIDUM FOLICUM [Concomitant]
     Active Substance: FOLIC ACID
  4. CALCIMAGON D3 [Concomitant]
     Active Substance: CALCIUM\CHOLECALCIFEROL
  5. OXYNORM [Suspect]
     Active Substance: OXYCODONE HYDROCHLORIDE
     Dosage: UNK, PRN (4X/D MAX; AS NECESSARY)
     Route: 048
  6. OXYNORM [Suspect]
     Active Substance: OXYCODONE HYDROCHLORIDE
     Indication: AGITATION
     Dosage: UNK, PRN (4X/D MAX; AS NECESSARY)
     Route: 048
  7. PREGABALIN. [Concomitant]
     Active Substance: PREGABALIN
  8. HALDOL [Concomitant]
     Active Substance: HALOPERIDOL
     Dosage: UNK, PRN
  9. EUTHYROX [Concomitant]
     Active Substance: LEVOTHYROXINE SODIUM
  10. OXYNORM [Suspect]
     Active Substance: OXYCODONE HYDROCHLORIDE
     Indication: PRODUCT USED FOR UNKNOWN INDICATION
     Dosage: 50 MG, SINGLE (5ML)
     Route: 048
     Dates: start: 20200726, end: 20200726

REACTIONS (4)
  - Bradypnoea [Recovered/Resolved]
  - Pneumonia aspiration [Recovering/Resolving]
  - Incorrect dose administered [Unknown]
  - Altered state of consciousness [Recovered/Resolved]

NARRATIVE: CASE EVENT DATE: 20200726
